FAERS Safety Report 18031545 (Version 3)
Quarter: 2020Q4

REPORT INFORMATION
  Report Type: Spontaneous
  Country: US (occurrence: US)
  Receive Date: 20200716
  Receipt Date: 20201027
  Transmission Date: 20210113
  Serious: Yes (Other)
  Sender: FDA-Public Use
  Company Number: US-PFIZER INC-2020271178

PATIENT
  Age: 72 Year
  Sex: Male

DRUGS (1)
  1. XELJANZ XR [Suspect]
     Active Substance: TOFACITINIB CITRATE
     Indication: RHEUMATOID ARTHRITIS
     Dosage: 11 MG, 1X/DAY (DAILY WITH A MEAL)
     Route: 048
     Dates: start: 202006

REACTIONS (4)
  - Osteoarthritis [Unknown]
  - Product dose omission issue [Unknown]
  - Arthralgia [Unknown]
  - Drug ineffective [Unknown]
